FAERS Safety Report 5930458-8 (Version None)
Quarter: 2008Q4

REPORT INFORMATION
  Report Type: 
  Country: None (occurrence: None)
  Receive Date: 20081022
  Receipt Date: 20081011
  Transmission Date: 20090506
  Serious: Yes (Hospitalization, Other)
  Sender: FDA-Public Use
  Company Number: 2008-03816

PATIENT
  Age: 53 Year
  Sex: Female
  Weight: 55.5 kg

DRUGS (2)
  1. VELCADE [Suspect]
     Indication: PANCREATIC CARCINOMA
     Dosage: 1.3 MG/M2, IV BOLUS
     Route: 040
     Dates: start: 20080922, end: 20081003
  2. VORINOSTAT(SUBEROYLANILIDE HYDROXAMIC ACID) ORAL DRUG UNSPECIFIED FORM [Suspect]
     Indication: PANCREATIC CARCINOMA
     Dosage: 300 MG, ORAL
     Route: 048
     Dates: start: 20080922, end: 20081002

REACTIONS (10)
  - ABDOMINAL PAIN [None]
  - ASCITES [None]
  - BACTERIAL INFECTION [None]
  - DIZZINESS [None]
  - HYPOALBUMINAEMIA [None]
  - HYPOTENSION [None]
  - NAUSEA [None]
  - PLATELET COUNT DECREASED [None]
  - VOMITING [None]
  - WHITE BLOOD CELL COUNT INCREASED [None]
